FAERS Safety Report 6662155-8 (Version None)
Quarter: 2010Q1

REPORT INFORMATION
  Report Type: 
  Country: None (occurrence: None)
  Receive Date: 20100331
  Receipt Date: 20100324
  Transmission Date: 20100710
  Serious: Yes (Hospitalization)
  Sender: FDA-Public Use
  Company Number: FR-BAXTER-2010BH008084

PATIENT
  Age: 67 Year
  Sex: Female
  Weight: 47 kg

DRUGS (3)
  1. ENDOXAN BAXTER [Suspect]
     Indication: ALLERGIC GRANULOMATOUS ANGIITIS
     Route: 042
     Dates: start: 20100210, end: 20100210
  2. CORDARONE [Concomitant]
     Indication: ATRIAL FIBRILLATION
     Route: 065
  3. PREVISCAN [Concomitant]
     Indication: ATRIAL FIBRILLATION
     Route: 065

REACTIONS (2)
  - HYPONATRAEMIA [None]
  - VOMITING [None]
